FAERS Safety Report 10151493 (Version 1)
Quarter: 2014Q2

REPORT INFORMATION
  Report Type: Spontaneous
  Country: IT (occurrence: IT)
  Receive Date: 20140503
  Receipt Date: 20140503
  Transmission Date: 20141212
  Serious: Yes (Other)
  Sender: FDA-Public Use
  Company Number: IT-ACCORD-023421

PATIENT
  Age: 54 Year
  Sex: Male

DRUGS (3)
  1. ESCITALOPRAM [Suspect]
     Indication: BIPOLAR II DISORDER
     Dosage: STARTED DRUG WITH 5MG/DAY DOSE
  2. VALPROATE [Suspect]
     Indication: BIPOLAR II DISORDER
     Dosage: 750 MG/DAY DOSE DRUG WAS STARTED
  3. LITHIUM [Suspect]
     Indication: BIPOLAR II DISORDER

REACTIONS (4)
  - Akathisia [Unknown]
  - Anxiety [Unknown]
  - Hypomania [Unknown]
  - Bruxism [Recovered/Resolved]
